FAERS Safety Report 8962582 (Version 2)
Quarter: 2013Q1

REPORT INFORMATION
  Report Type: Spontaneous
  Country: GB (occurrence: GB)
  Receive Date: 20121213
  Receipt Date: 20130214
  Transmission Date: 20140127
  Serious: Yes (Other)
  Sender: FDA-Public Use
  Company Number: GB-ABBOTT-12P-167-1020566-00

PATIENT
  Age: 69 None
  Sex: Female
  Weight: 73.2 kg

DRUGS (4)
  1. HUMIRA [Suspect]
     Indication: RHEUMATOID ARTHRITIS
     Route: 058
     Dates: start: 20121016, end: 20121201
  2. PREDNISOLONE [Concomitant]
     Indication: RHEUMATOID ARTHRITIS
     Route: 048
     Dates: start: 2011
  3. IRBESARTAN [Concomitant]
     Indication: HYPERTENSION
     Route: 048
     Dates: start: 2007
  4. THYROSINE [Concomitant]
     Indication: THYROID DISORDER
     Route: 048
     Dates: start: 1985

REACTIONS (7)
  - Scab [Recovered/Resolved]
  - Rash [Recovered/Resolved]
  - Acne [Recovered/Resolved]
  - Rash macular [Recovered/Resolved]
  - Dermatitis allergic [Recovered/Resolved]
  - Blister [Recovered/Resolved]
  - Skin plaque [Recovered/Resolved]
